FAERS Safety Report 6604624-2 (Version None)
Quarter: 2010Q1

REPORT INFORMATION
  Report Type: 
  Country: None (occurrence: None)
  Receive Date: 20100226
  Receipt Date: 20100218
  Transmission Date: 20100710
  Serious: Yes (Hospitalization)
  Sender: FDA-Public Use
  Company Number: US-SANOFI-AVENTIS-2010SA009997

PATIENT
  Age: 58 Year
  Sex: Male

DRUGS (5)
  1. LANTUS [Suspect]
     Indication: TYPE 2 DIABETES MELLITUS
     Dosage: 15-20 UNITS DAILY
     Route: 058
  2. SOLOSTAR [Suspect]
  3. HUMALOG MIX PEN [Concomitant]
  4. PREDNISONE TAB [Concomitant]
  5. ANTIHYPERTENSIVES [Concomitant]

REACTIONS (4)
  - INJECTION SITE HAEMATOMA [None]
  - MALAISE [None]
  - PNEUMONIA [None]
  - RENAL DISORDER [None]
